FAERS Safety Report 17969425 (Version 1)
Quarter: 2020Q3

REPORT INFORMATION
  Report Type: Spontaneous
  Country: PL (occurrence: PL)
  Receive Date: 20200701
  Receipt Date: 20200701
  Transmission Date: 20201103
  Serious: Yes (Hospitalization)
  Sender: FDA-Public Use
  Company Number: PL-PFIZER INC-2020249509

PATIENT
  Age: 44 Year
  Sex: Male

DRUGS (9)
  1. RITUXIMAB. [Suspect]
     Active Substance: RITUXIMAB
     Dosage: UNK UNK, CYCLIC (RITUXIMAB MONOTHERAPY, EVERY 2 MONTHS FOR 2 YEARS)
     Route: 065
  2. VINCRISTINE [Suspect]
     Active Substance: VINCRISTINE
     Indication: B-CELL LYMPHOMA
     Dosage: UNK (1ST LINE, 8  R?CHOP)
     Route: 065
     Dates: start: 201610, end: 201703
  3. RITUXIMAB. [Suspect]
     Active Substance: RITUXIMAB
     Dosage: UNK (1ST LINE, 8  R?CHOP)
     Route: 065
     Dates: start: 201610, end: 201703
  4. RITUXIMAB. [Suspect]
     Active Substance: RITUXIMAB
     Indication: B-CELL LYMPHOMA
     Dosage: 375 MG/M2 (2ND LINE, 6 X BR (BENDAMUSTIN?RITUXIMAB CHEMOTHERAPY), 375MG/M2 D1)
     Route: 065
  5. CYCLOPHOSPHAMIDE. [Suspect]
     Active Substance: CYCLOPHOSPHAMIDE
     Indication: B-CELL LYMPHOMA
     Dosage: UNK (1ST LINE, 8  R?CHOP)
     Route: 065
     Dates: start: 201610, end: 201703
  6. BENDAMUSTINE [Suspect]
     Active Substance: BENDAMUSTINE
     Indication: B-CELL LYMPHOMA
     Dosage: 90 MG/M2 (2ND LINE, 6  BR BENDAMUSTIN AND RITUXIMAB CHEMOTHERAPY 90MG/M2 D1/2)
     Route: 065
  7. DOXORUBICIN HCL [Suspect]
     Active Substance: DOXORUBICIN HYDROCHLORIDE
     Indication: B-CELL LYMPHOMA
     Dosage: UNK (1ST LINE, 8  R?CHOP)
     Route: 065
     Dates: start: 201610, end: 201703
  8. PREDNISOLONE. [Suspect]
     Active Substance: PREDNISOLONE
     Indication: B-CELL LYMPHOMA
     Dosage: UNK (1ST LINE, 8  R?CHOP)
     Route: 065
     Dates: start: 201610, end: 201703
  9. CYCLOPHOSPHAMIDE. [Suspect]
     Active Substance: CYCLOPHOSPHAMIDE
     Dosage: UNK (1ST LINE, 8  R?CHOP)
     Route: 065
     Dates: start: 201610, end: 201703

REACTIONS (1)
  - Cellulitis [Unknown]
